FAERS Safety Report 11938427 (Version 3)
Quarter: 2016Q1

REPORT INFORMATION
  Report Type: Spontaneous
  Country: US (occurrence: US)
  Receive Date: 20160122
  Receipt Date: 20160219
  Transmission Date: 20160526
  Serious: Yes (Other)
  Sender: FDA-Public Use
  Company Number: US-PFIZER INC-2015471335

PATIENT
  Age: 52 Year
  Sex: Male
  Weight: 95.24 kg

DRUGS (14)
  1. ADVIL [Suspect]
     Active Substance: IBUPROFEN
     Indication: PAIN PROPHYLAXIS
     Dosage: 400 MG, 3X/DAY
     Route: 048
     Dates: start: 20151221, end: 20151224
  2. COENZYME Q10 [Concomitant]
     Active Substance: UBIDECARENONE
     Dosage: 100 MG, UNK (TAKE AS DIRECTED)
     Route: 048
     Dates: start: 20150127
  3. CICLOPIROX. [Concomitant]
     Active Substance: CICLOPIROX
     Indication: TINEA PEDIS
     Dosage: UNK UNK, 2X/DAY(APPLY TWICE A DAY TO FEET)
     Dates: start: 2015
  4. OLANZAPINE. [Concomitant]
     Active Substance: OLANZAPINE
     Indication: PSYCHOTIC DISORDER
     Dosage: 5 MG, 2X/DAY
     Dates: start: 199902
  5. AVEENO [Concomitant]
     Active Substance: DIMETHICONE\HOMOSALATE\OCTINOXATE\OCTISALATE\TITANIUM DIOXIDE
     Indication: KNEE DEFORMITY
     Dosage: UNK UNK, 2X/DAY(APPLY TO KNEES TWICE A DAY)
     Dates: start: 2015
  6. ZYPREXA [Concomitant]
     Active Substance: OLANZAPINE
     Indication: PSYCHOTIC DISORDER
     Dosage: 10 MG, 1X/DAY
  7. OLANZAPINE. [Concomitant]
     Active Substance: OLANZAPINE
     Indication: SCHIZOAFFECTIVE DISORDER
     Dosage: 10 MG, DAILY (TAKE 1 TABLET DAILY)
  8. ATIVAN [Concomitant]
     Active Substance: LORAZEPAM
     Dosage: 1 MG, AS NEEDED
     Route: 048
  9. ASPIRIN. [Suspect]
     Active Substance: ASPIRIN
     Dosage: 650 MG, UNK(TOOK TWO ASPIRIN 325MG TABLETS ON THE MORNING OF 21DEC2015)
     Dates: start: 20151221, end: 20151221
  10. HALDOL [Concomitant]
     Active Substance: HALOPERIDOL
     Dosage: 2 MG, 3X/DAY
  11. ZYPREXA [Concomitant]
     Active Substance: OLANZAPINE
     Dosage: 5 MG, 2X/DAY
  12. ATIVAN [Concomitant]
     Active Substance: LORAZEPAM
     Indication: ANXIETY
     Dosage: 1 MG, 3X/DAY
  13. MUPIROCIN CALCIUM. [Concomitant]
     Active Substance: MUPIROCIN CALCIUM
     Dosage: 2 %, UNK (APPLY THIN FILM TO AFFECTED AREA 2 TIMES FOR 5 DAYS)
     Dates: start: 20150514
  14. ADVIL [Suspect]
     Active Substance: IBUPROFEN
     Indication: PROCEDURAL PAIN
     Dosage: 400 MG, 2X/DAY
     Route: 048
     Dates: start: 20151225, end: 20151225

REACTIONS (6)
  - Anhedonia [Unknown]
  - Suicidal ideation [Unknown]
  - Confusional state [Unknown]
  - Pre-existing condition improved [Not Recovered/Not Resolved]
  - Depression [Unknown]
  - Therapeutic response unexpected [Not Recovered/Not Resolved]

NARRATIVE: CASE EVENT DATE: 201512
